FAERS Safety Report 9887937 (Version 1)
Quarter: 2014Q1

REPORT INFORMATION
  Report Type: Spontaneous
  Country: US (occurrence: None)
  Receive Date: 20140207
  Receipt Date: 20140207
  Transmission Date: 20141002
  Serious: Yes (Hospitalization)
  Sender: FDA-Public Use
  Company Number: FR-INDICUS PHARMA-000228

PATIENT
  Age: 54 Year
  Sex: Female

DRUGS (1)
  1. METFORMIN HYDROCHLORIDE (METFORMIN HYDROCHLORIDE) [Suspect]

REACTIONS (7)
  - Bradyphrenia [None]
  - Metabolic acidosis [None]
  - Renal failure [None]
  - Gait disturbance [None]
  - Dyspnoea [None]
  - Confusional state [None]
  - Renal tubular disorder [None]
